FAERS Safety Report 7637655-4 (Version None)
Quarter: 2011Q3

REPORT INFORMATION
  Report Type: 
  Country: None (occurrence: None)
  Receive Date: 20110726
  Receipt Date: 20110720
  Transmission Date: 20111222
  Serious: Yes (Life-Threatening, Hospitalization, Disabling, Other)
  Sender: FDA-Public Use
  Company Number: DE-MERCK-1107DEU00048

PATIENT
  Age: 62 Year
  Sex: Male
  Weight: 74 kg

DRUGS (2)
  1. JANUVIA [Suspect]
     Indication: BLOOD GLUCOSE INCREASED
     Route: 048
     Dates: start: 20081027
  2. METFORMIN [Concomitant]
     Indication: BLOOD GLUCOSE INCREASED
     Route: 048

REACTIONS (4)
  - CRITICAL ILLNESS POLYNEUROPATHY [None]
  - BLOOD GLUCOSE INCREASED [None]
  - PANCREATITIS NECROTISING [None]
  - PNEUMONIA [None]
